FAERS Safety Report 18895312 (Version 1)
Quarter: 2021Q1

REPORT INFORMATION
  Report Type: Spontaneous
  Country: US (occurrence: US)
  Receive Date: 20210215
  Receipt Date: 20210215
  Transmission Date: 20210420
  Serious: No
  Sender: FDA-Public Use
  Company Number: US-TEVA-2021-US-1879145

PATIENT
  Age: 28 Year
  Sex: Female

DRUGS (1)
  1. BUPROPION TEVA [Suspect]
     Active Substance: BUPROPION
     Route: 065
     Dates: start: 20210130

REACTIONS (2)
  - Productive cough [Unknown]
  - Product substitution issue [Unknown]

NARRATIVE: CASE EVENT DATE: 2021
